FAERS Safety Report 22317157 (Version 1)
Quarter: 2023Q2

REPORT INFORMATION
  Report Type: Report from Study
  Country: US (occurrence: US)
  Receive Date: 20230514
  Receipt Date: 20230514
  Transmission Date: 20230722
  Serious: Yes (Hospitalization)
  Sender: FDA-Public Use
  Company Number: US-ABBVIE-4764153

PATIENT
  Sex: Female

DRUGS (1)
  1. IMBRUVICA [Suspect]
     Active Substance: IBRUTINIB
     Indication: Chronic lymphocytic leukaemia
     Route: 048
     Dates: start: 20230224

REACTIONS (8)
  - Blood glucose increased [Unknown]
  - Anxiety [Unknown]
  - Headache [Unknown]
  - Depression [Unknown]
  - Blood pressure increased [Unknown]
  - Epistaxis [Unknown]
  - Sneezing [Unknown]
  - Cough [Unknown]
